FAERS Safety Report 4503030-4 (Version None)
Quarter: 2004Q4

REPORT INFORMATION
  Report Type: 
  Country: None (occurrence: None)
  Receive Date: 20041112
  Receipt Date: 20041101
  Transmission Date: 20050328
  Serious: Yes (Hospitalization)
  Sender: FDA-Public Use
  Company Number: 200420832BWH

PATIENT
  Age: 80 Year
  Sex: Female

DRUGS (15)
  1. AVELOX [Suspect]
     Indication: BONE INFECTION
     Dosage: 400 MG, TOTAL DAILY, ORAL
     Route: 048
     Dates: start: 20041006, end: 20041011
  2. LASIX [Suspect]
     Dosage: 20 MG, TOTAL DAILY, ORAL
     Route: 048
     Dates: end: 20041014
  3. LIPITOR [Suspect]
     Dosage: 5 MG, TOTAL DAILY,
     Dates: end: 20041011
  4. UNASYN [Concomitant]
  5. COUMADIN [Concomitant]
  6. CENTRUM [Concomitant]
  7. SYNTHROID [Concomitant]
  8. ATENOLOL [Concomitant]
  9. METAMUCIL ^PROCTER + GAMBLE^ [Concomitant]
  10. XALATAN [Concomitant]
  11. LANOXIN [Concomitant]
  12. FOSAMAX [Concomitant]
  13. VITAMIN E [Concomitant]
  14. VITAMIN C [Concomitant]
  15. CITRACAL [Concomitant]

REACTIONS (12)
  - BILE DUCT STONE [None]
  - BONE INFECTION [None]
  - CARDIAC FAILURE CONGESTIVE [None]
  - CHEST PAIN [None]
  - DRUG INTOLERANCE [None]
  - EJECTION FRACTION DECREASED [None]
  - HAEMARTHROSIS [None]
  - IDIOSYNCRATIC DRUG REACTION [None]
  - INFLAMMATION [None]
  - LACERATION [None]
  - PANCREATITIS ACUTE [None]
  - PURULENCE [None]
